FAERS Safety Report 4495840-7 (Version None)
Quarter: 2004Q4

REPORT INFORMATION
  Report Type: 
  Country: None (occurrence: None)
  Receive Date: 20041108
  Receipt Date: 20041026
  Transmission Date: 20050328
  Serious: Yes (Other)
  Sender: FDA-Public Use
  Company Number: NL-GLAXOSMITHKLINE-B0349746A

PATIENT
  Age: 61 Year
  Sex: Female

DRUGS (1)
  1. PAROXETINE [Suspect]
     Dosage: 20MG PER DAY
     Route: 048
     Dates: start: 19970101

REACTIONS (1)
  - VISUAL ACUITY REDUCED [None]
